FAERS Safety Report 11061627 (Version 1)
Quarter: 2015Q2

REPORT INFORMATION
  Report Type: Spontaneous
  Country: US (occurrence: None)
  Receive Date: 20150423
  Receipt Date: 20150423
  Transmission Date: 20150821
  Serious: Yes (Other)
  Sender: FDA-Public Use
  Company Number: None

PATIENT
  Age: 52 Year
  Sex: Female
  Weight: 90.72 kg

DRUGS (8)
  1. NAPROXEN. [Concomitant]
     Active Substance: NAPROXEN
  2. DICLOFENAC SOD [Suspect]
     Active Substance: DICLOFENAC SODIUM
     Indication: ARTHRALGIA
     Dosage: ONE PILL
     Route: 048
     Dates: start: 20150216, end: 20150419
  3. LISINOPRIL. [Concomitant]
     Active Substance: LISINOPRIL
  4. DICLOFENAC SOD [Suspect]
     Active Substance: DICLOFENAC SODIUM
     Indication: SWELLING
     Dosage: ONE PILL
     Route: 048
     Dates: start: 20150216, end: 20150419
  5. TRAMADOL [Concomitant]
     Active Substance: TRAMADOL
  6. HEARTBURN RELIEF RIMATID [Concomitant]
  7. DICLOFENAC SOD [Suspect]
     Active Substance: DICLOFENAC SODIUM
     Indication: ARTHRITIS
     Dosage: ONE PILL
     Route: 048
     Dates: start: 20150216, end: 20150419
  8. ALLOPURINOL. [Concomitant]
     Active Substance: ALLOPURINOL

REACTIONS (2)
  - Bone pain [None]
  - Peripheral swelling [None]

NARRATIVE: CASE EVENT DATE: 20150402
